FAERS Safety Report 6175165-4 (Version None)
Quarter: 2009Q2

REPORT INFORMATION
  Report Type: 
  Country: None (occurrence: None)
  Receive Date: 20090430
  Receipt Date: 20090119
  Transmission Date: 20091009
  Serious: No
  Sender: FDA-Public Use
  Company Number: CA-ASTRAZENECA-2009UW01150

PATIENT
  Sex: Female

DRUGS (8)
  1. NEXIUM [Suspect]
     Indication: REFLUX OESOPHAGITIS
     Route: 048
     Dates: start: 20060101
  2. NEXIUM [Suspect]
     Route: 048
     Dates: start: 20080901
  3. NEXIUM [Suspect]
     Route: 048
  4. NEXIUM [Suspect]
     Dosage: ONE OR TWO TABLETS DAILY
     Route: 048
  5. ADVAIR HFA [Suspect]
     Indication: DYSPNOEA
     Dosage: UNKNOWN
     Route: 065
  6. NORVASC [Concomitant]
     Indication: HYPERTENSION
     Route: 048
  7. WATER PILL [Concomitant]
     Indication: HYPERTENSION
     Dosage: PRN
     Route: 048
  8. CLARITIN [Concomitant]
     Indication: MULTIPLE ALLERGIES
     Dosage: PRN
     Route: 048
     Dates: start: 20060101

REACTIONS (19)
  - ABDOMINAL PAIN UPPER [None]
  - ASTHMA [None]
  - BLOOD PRESSURE ABNORMAL [None]
  - BRONCHITIS [None]
  - COUGH [None]
  - DIARRHOEA [None]
  - DRUG INEFFECTIVE [None]
  - DRUG PRESCRIBING ERROR [None]
  - DRY MOUTH [None]
  - DYSPHONIA [None]
  - DYSPNOEA [None]
  - FOOD ALLERGY [None]
  - HEADACHE [None]
  - HEART RATE INCREASED [None]
  - INCREASED UPPER AIRWAY SECRETION [None]
  - INSOMNIA [None]
  - RHINITIS SEASONAL [None]
  - SPEECH DISORDER [None]
  - VISION BLURRED [None]
